FAERS Safety Report 13074879 (Version 1)
Quarter: 2016Q4

REPORT INFORMATION
  Report Type: Spontaneous
  Country: US (occurrence: US)
  Receive Date: 20161230
  Receipt Date: 20161230
  Transmission Date: 20170207
  Serious: No
  Sender: FDA-Public Use
  Company Number: US-PFIZER INC-2016594559

PATIENT
  Age: 57 Year
  Sex: Male

DRUGS (6)
  1. BACLOFEN. [Concomitant]
     Active Substance: BACLOFEN
     Indication: INTERVERTEBRAL DISC DISORDER
     Dosage: 20 MG, 3X/DAY
     Dates: start: 20160624
  2. MS CONTIN [Concomitant]
     Active Substance: MORPHINE SULFATE
     Indication: SPINAL OSTEOARTHRITIS
     Dosage: 15 MG, 1X/DAY, (AT BEDTIME)
     Route: 048
     Dates: start: 20161215
  3. BACLOFEN. [Concomitant]
     Active Substance: BACLOFEN
     Indication: RADICULOPATHY
  4. PERCOCET [Concomitant]
     Active Substance: ACETAMINOPHEN\OXYCODONE HYDROCHLORIDE
     Indication: SPINAL OSTEOARTHRITIS
     Dosage: 1 (ONE) TABLET MAY TAKE 5 A DAY FOR 10 DAYS THEN [OXYCODONE HYDROCHLORIDE 10 MG, PARACETAMOL 325 MG]
     Dates: start: 20161215
  5. LYRICA [Suspect]
     Active Substance: PREGABALIN
     Dosage: 100 MG, 4X/DAY
     Dates: start: 20161215
  6. LYRICA [Suspect]
     Active Substance: PREGABALIN
     Indication: SPINAL OSTEOARTHRITIS
     Dosage: 100 MG, 4X/DAY
     Route: 048
     Dates: start: 20160705

REACTIONS (1)
  - Off label use [Unknown]
